FAERS Safety Report 4424362-4 (Version None)
Quarter: 2004Q3

REPORT INFORMATION
  Report Type: 
  Country: None (occurrence: None)
  Receive Date: 20040809
  Receipt Date: 20040723
  Transmission Date: 20050211
  Serious: Yes (Hospitalization)
  Sender: FDA-Public Use
  Company Number: 201925

PATIENT
  Age: 16 Year
  Sex: Female

DRUGS (1)
  1. AVONEX [Suspect]
     Indication: MULTIPLE SCLEROSIS
     Dosage: 30 MCG QW IM
     Route: 030
     Dates: start: 20040318, end: 20040720

REACTIONS (9)
  - DIPLOPIA [None]
  - DIZZINESS [None]
  - EYELID PTOSIS [None]
  - HYPOAESTHESIA [None]
  - MULTIPLE SCLEROSIS RELAPSE [None]
  - PUPILS UNEQUAL [None]
  - RED BLOOD CELL COUNT ABNORMAL [None]
  - URINARY RETENTION [None]
  - WHITE BLOOD CELL COUNT ABNORMAL [None]
